FAERS Safety Report 4452088-X (Version None)
Quarter: 2004Q3

REPORT INFORMATION
  Report Type: 
  Country: None (occurrence: None)
  Receive Date: 20040916
  Receipt Date: 20040903
  Transmission Date: 20050211
  Serious: Yes (Other)
  Sender: FDA-Public Use
  Company Number: US-JNJFOC-20040901845

PATIENT
  Sex: Female
  Weight: 56.7 kg

DRUGS (4)
  1. REMICADE [Suspect]
     Indication: RHEUMATOID ARTHRITIS
     Route: 042
  2. ^ALL KINDS OF MEDICATIONS^ [Concomitant]
  3. *PROCRIT* [Concomitant]
  4. *IRON* [Concomitant]

REACTIONS (4)
  - BLOOD PRODUCT TRANSFUSION [None]
  - CARDIOMEGALY [None]
  - OESOPHAGEAL DISCOMFORT [None]
  - WEIGHT DECREASED [None]
